FAERS Safety Report 22185099 (Version 1)
Quarter: 2023Q2

REPORT INFORMATION
  Report Type: Spontaneous
  Country: DE (occurrence: DE)
  Receive Date: 20230407
  Receipt Date: 20230407
  Transmission Date: 20230721
  Serious: Yes (Other)
  Sender: FDA-Public Use
  Company Number: DE-BAYER-2021A244807

PATIENT
  Age: 68 Year
  Sex: Male

DRUGS (2)
  1. XARELTO [Suspect]
     Active Substance: RIVAROXABAN
     Indication: Product used for unknown indication
     Dosage: 20 MG, QD
     Route: 065
     Dates: start: 2014
  2. LEVOTHYROXINE SODIUM [Concomitant]
     Active Substance: LEVOTHYROXINE SODIUM
     Dosage: 75 MG, QD

REACTIONS (1)
  - Erectile dysfunction [Not Recovered/Not Resolved]

NARRATIVE: CASE EVENT DATE: 20201101
